FAERS Safety Report 14056957 (Version 3)
Quarter: 2018Q1

REPORT INFORMATION
  Report Type: Spontaneous
  Country: US (occurrence: US)
  Receive Date: 20171006
  Receipt Date: 20180305
  Transmission Date: 20180508
  Serious: Yes (Hospitalization, Other)
  Sender: FDA-Public Use
  Company Number: US-BIOMARINAP-US-2017-115523

PATIENT
  Age: 29 Year
  Sex: Female
  Weight: 54.5 kg

DRUGS (1)
  1. KUVAN [Suspect]
     Active Substance: SAPROPTERIN DIHYDROCHLORIDE
     Indication: PHENYLKETONURIA
     Dosage: 1100 MG, QD
     Route: 048
     Dates: start: 20170808, end: 20180228

REACTIONS (4)
  - Maternal exposure during pregnancy [Recovered/Resolved]
  - Nausea [Not Recovered/Not Resolved]
  - Premature delivery [Recovered/Resolved]
  - Hyperemesis gravidarum [Not Recovered/Not Resolved]

NARRATIVE: CASE EVENT DATE: 20170925
